FAERS Safety Report 6241701-2 (Version None)
Quarter: 2009Q2

REPORT INFORMATION
  Report Type: 
  Country: None (occurrence: None)
  Receive Date: 20090623
  Receipt Date: 20090618
  Transmission Date: 20091009
  Serious: Yes (Life-Threatening, Other)
  Sender: FDA-Public Use
  Company Number: US-CELGENEUS-163-21880-09051134

PATIENT
  Sex: Female

DRUGS (4)
  1. REVLIMID [Suspect]
     Indication: MULTIPLE MYELOMA
     Route: 048
     Dates: start: 20090401
  2. REVLIMID [Suspect]
     Route: 048
     Dates: start: 20090101, end: 20090201
  3. REVLIMID [Suspect]
     Route: 048
     Dates: start: 20070601, end: 20070901
  4. REVLIMID [Suspect]
     Route: 048
     Dates: start: 20070401, end: 20070401

REACTIONS (1)
  - RENAL FAILURE ACUTE [None]
